FAERS Safety Report 15654262 (Version 2)
Quarter: 2019Q1

REPORT INFORMATION
  Report Type: Report from Study
  Country: None (occurrence: BR)
  Receive Date: 20181125
  Receipt Date: 20190222
  Transmission Date: 20190417
  Serious: Yes (Other)
  Sender: FDA-Public Use
  Company Number: BR-ABBVIE-18K-020-2565142-00

PATIENT
  Sex: Female
  Weight: 75 kg

DRUGS (3)
  1. METHOTREXATE. [Suspect]
     Active Substance: METHOTREXATE
     Indication: PRODUCT USED FOR UNKNOWN INDICATION
     Route: 065
  2. HUMIRA [Suspect]
     Active Substance: ADALIMUMAB
     Indication: ANKYLOSING SPONDYLITIS
     Route: 058
     Dates: end: 20181226
  3. HUMIRA [Suspect]
     Active Substance: ADALIMUMAB
     Indication: ANKYLOSING SPONDYLITIS
     Route: 058
     Dates: start: 20141128

REACTIONS (15)
  - Fatigue [Unknown]
  - Stress [Unknown]
  - Injection site pruritus [Recovered/Resolved]
  - Pharyngeal disorder [Unknown]
  - Unevaluable event [Unknown]
  - Amnesia [Recovering/Resolving]
  - Somnolence [Unknown]
  - Tooth loss [Unknown]
  - Injection site pain [Recovered/Resolved]
  - Nausea [Unknown]
  - Bone loss [Unknown]
  - Sunburn [Unknown]
  - Neck pain [Unknown]
  - Tooth disorder [Unknown]
  - Osteoarthritis [Unknown]
